FAERS Safety Report 11194454 (Version 2)
Quarter: 2016Q1

REPORT INFORMATION
  Report Type: Report from Study
  Country: BR (occurrence: BR)
  Receive Date: 20150616
  Receipt Date: 20160122
  Transmission Date: 20160525
  Serious: Yes (Other)
  Sender: FDA-Public Use
  Company Number: PHHY2015BR070655

PATIENT
  Sex: Female
  Weight: 59 kg

DRUGS (1)
  1. GILENYA [Suspect]
     Active Substance: FINGOLIMOD HYDROCHLORIDE
     Indication: MULTIPLE SCLEROSIS
     Dosage: 0.5 MG, QD
     Route: 048
     Dates: start: 201403, end: 2014

REACTIONS (4)
  - Coordination abnormal [Recovered/Resolved]
  - Urinary incontinence [Recovered/Resolved]
  - Seizure [Recovered/Resolved]
  - Alopecia [Recovered/Resolved]
